FAERS Safety Report 6393536-8 (Version None)
Quarter: 2009Q4

REPORT INFORMATION
  Report Type: 
  Country: None (occurrence: None)
  Receive Date: 20091008
  Receipt Date: 20091005
  Transmission Date: 20100525
  Serious: Yes (Hospitalization)
  Sender: FDA-Public Use
  Company Number: B0591738A

PATIENT
  Sex: Male
  Weight: 75 kg

DRUGS (13)
  1. AUGMENTIN '125' [Suspect]
     Indication: DRUG USE FOR UNKNOWN INDICATION
     Dosage: 1G THREE TIMES PER DAY
     Route: 042
     Dates: start: 20090812, end: 20090818
  2. ARIXTRA [Suspect]
     Indication: DRUG USE FOR UNKNOWN INDICATION
     Dosage: 7.5MG PER DAY
     Route: 058
     Dates: start: 20090814
  3. COUMADIN [Suspect]
     Indication: DRUG USE FOR UNKNOWN INDICATION
     Dosage: 4MG PER DAY
     Route: 048
     Dates: start: 20090814, end: 20090818
  4. ACETAMINOPHEN [Suspect]
     Indication: DRUG USE FOR UNKNOWN INDICATION
     Route: 042
     Dates: start: 20090810, end: 20090818
  5. CLAFORAN [Suspect]
     Indication: SUPERINFECTION
     Dosage: 1G PER DAY
     Route: 051
     Dates: start: 20090811, end: 20090812
  6. OFLOCET [Suspect]
     Indication: SUPERINFECTION
     Route: 065
     Dates: start: 20090811, end: 20090811
  7. SPASFON [Suspect]
     Indication: DRUG USE FOR UNKNOWN INDICATION
     Route: 065
     Dates: start: 20090810, end: 20090811
  8. LOVENOX [Suspect]
     Indication: PULMONARY EMBOLISM
     Dosage: 9000IU PER DAY
     Route: 058
     Dates: start: 20090811, end: 20090813
  9. CONTRAMAL [Suspect]
     Indication: DRUG USE FOR UNKNOWN INDICATION
     Dosage: 100MG TWICE PER DAY
     Route: 042
     Dates: start: 20090810, end: 20090812
  10. ACUPAN [Suspect]
     Indication: DRUG USE FOR UNKNOWN INDICATION
     Route: 042
     Dates: start: 20090810, end: 20090813
  11. MORPHINE [Suspect]
     Route: 042
     Dates: start: 20090811, end: 20090818
  12. ANTALGIC [Concomitant]
     Route: 065
     Dates: start: 20090809
  13. ZOCOR [Concomitant]
     Route: 048

REACTIONS (4)
  - ALANINE AMINOTRANSFERASE INCREASED [None]
  - ASPARTATE AMINOTRANSFERASE INCREASED [None]
  - BLOOD ALKALINE PHOSPHATASE INCREASED [None]
  - GAMMA-GLUTAMYLTRANSFERASE INCREASED [None]
